FAERS Safety Report 23576572 (Version 2)
Quarter: 2025Q4

REPORT INFORMATION
  Report Type: Spontaneous
  Country: US (occurrence: US)
  Receive Date: 20240228
  Receipt Date: 20251002
  Transmission Date: 20260117
  Serious: Yes (Hospitalization)
  Sender: RIGEL PHARMACEUTICALS
  Company Number: US-RIGEL Pharmaceuticals, INC-2024OLU000014

PATIENT
  Sex: Female
  Weight: 89.3 kg

DRUGS (1)
  1. REZLIDHIA [Suspect]
     Active Substance: OLUTASIDENIB
     Indication: Acute myeloid leukaemia
     Dosage: 150 MG, BID
     Route: 048
     Dates: start: 20231208

REACTIONS (1)
  - Pneumonia [Unknown]
